FAERS Safety Report 5076076-8 (Version None)
Quarter: 2006Q3

REPORT INFORMATION
  Report Type: 
  Country: None (occurrence: None)
  Receive Date: 20060807
  Receipt Date: 20060724
  Transmission Date: 20061208
  Serious: Yes (Other)
  Sender: FDA-Public Use
  Company Number: 2006091892

PATIENT
  Sex: Female

DRUGS (1)
  1. DEPO-MEDROL [Suspect]
     Indication: BACK PAIN
     Dosage: EPIDURAL
     Route: 008
     Dates: start: 20000101

REACTIONS (3)
  - FAECAL INCONTINENCE [None]
  - INCORRECT ROUTE OF DRUG ADMINISTRATION [None]
  - URINARY INCONTINENCE [None]
